FAERS Safety Report 5736433-0 (Version None)
Quarter: 2008Q2

REPORT INFORMATION
  Report Type: 
  Country: None (occurrence: None)
  Receive Date: 20080513
  Receipt Date: 20080509
  Transmission Date: 20081010
  Serious: Yes (Other)
  Sender: FDA-Public Use
  Company Number: B0518787A

PATIENT
  Age: 52 Year
  Sex: Male
  Weight: 46.1 kg

DRUGS (8)
  1. ZIAGEN [Suspect]
     Indication: HIV INFECTION
     Dosage: 600MG PER DAY
     Route: 065
     Dates: start: 20051219
  2. KALETRA [Concomitant]
     Dosage: 6CAP PER DAY
     Route: 065
  3. METHADONE HCL [Concomitant]
     Route: 065
  4. AVANZA [Concomitant]
     Route: 065
  5. ZYPREXA [Concomitant]
     Route: 065
  6. STOCRIN [Concomitant]
     Route: 065
  7. EZETROL [Concomitant]
     Route: 065
  8. RHINOCORT [Concomitant]
     Dosage: 10MG TWICE PER DAY
     Route: 065

REACTIONS (1)
  - MYOCARDIAL INFARCTION [None]
